FAERS Safety Report 7708891-3 (Version None)
Quarter: 2011Q3

REPORT INFORMATION
  Report Type: 
  Country: None (occurrence: None)
  Receive Date: 20110825
  Receipt Date: 20110815
  Transmission Date: 20111222
  Serious: Yes (Hospitalization)
  Sender: FDA-Public Use
  Company Number: DE-SANOFI-AVENTIS-2011SA052255

PATIENT
  Age: 70 Year
  Sex: Male

DRUGS (11)
  1. DOCETAXEL [Suspect]
     Route: 042
     Dates: start: 20110718, end: 20110718
  2. DARVOCET-N 50 [Concomitant]
     Dates: start: 19960101
  3. DEXAMETHASONE [Concomitant]
     Indication: PREMEDICATION
     Dates: start: 20110626, end: 20110719
  4. VERGENTAN [Concomitant]
     Indication: PREMEDICATION
     Dates: start: 20110627, end: 20110720
  5. METOPROLOL [Concomitant]
     Dates: start: 20101126
  6. METFORMIN HCL [Concomitant]
     Dates: start: 19860101
  7. BLINDED THERAPY [Suspect]
     Indication: NON-SMALL CELL LUNG CANCER
     Route: 042
     Dates: start: 20110627, end: 20110627
  8. BLINDED THERAPY [Suspect]
     Route: 042
     Dates: start: 20110718, end: 20110718
  9. DOCETAXEL [Suspect]
     Indication: NON-SMALL CELL LUNG CANCER
     Route: 042
     Dates: start: 20110627, end: 20110627
  10. PANTOPRAZOLE [Concomitant]
     Dates: start: 20100716
  11. CALCIPOTRIOL [Concomitant]
     Dates: start: 19960101

REACTIONS (1)
  - PSORIASIS [None]
